FAERS Safety Report 25019794 (Version 1)
Quarter: 2025Q1

REPORT INFORMATION
  Report Type: Spontaneous
  Country: US (occurrence: US)
  Receive Date: 20250227
  Receipt Date: 20250227
  Transmission Date: 20250408
  Serious: No
  Sender: UCB
  Company Number: US-UCBSA-2024016406

PATIENT
  Sex: Male

DRUGS (1)
  1. KEPPRA XR [Suspect]
     Active Substance: LEVETIRACETAM
     Indication: Epilepsy
     Dosage: 7.5 MILLILITER, 2X/DAY (BID)
     Dates: start: 20210108, end: 20230105

REACTIONS (2)
  - Adverse event [Unknown]
  - Drug ineffective [Unknown]
